FAERS Safety Report 5682666-1 (Version None)
Quarter: 2008Q1

REPORT INFORMATION
  Report Type: 
  Country: None (occurrence: None)
  Receive Date: 20080327
  Receipt Date: 20080220
  Transmission Date: 20080703
  Serious: Yes (Other)
  Sender: FDA-Public Use
  Company Number: US-BRISTOL-MYERS SQUIBB COMPANY-14074959

PATIENT
  Age: 38 Year
  Sex: Female

DRUGS (1)
  1. ORENCIA [Suspect]
     Route: 023
     Dates: start: 20080130, end: 20080130

REACTIONS (1)
  - ANAPHYLACTIC REACTION [None]
